FAERS Safety Report 9687261 (Version 2)
Quarter: 2013Q4

REPORT INFORMATION
  Report Type: Report from Study
  Country: VE (occurrence: VE)
  Receive Date: 20131114
  Receipt Date: 20131122
  Transmission Date: 20140711
  Serious: Yes (Hospitalization)
  Sender: FDA-Public Use
  Company Number: VE-ROCHE-1302975

PATIENT
  Age: 78 Year
  Sex: Female

DRUGS (7)
  1. XOLAIR [Suspect]
     Indication: ASTHMA
     Dosage: LAST DOSE PRIOR TO SAE WAS ON /OCT/2013
     Route: 058
     Dates: start: 201302, end: 201310
  2. FORADIL [Suspect]
     Indication: ASTHMA
     Dosage: LAST DOSE PRIOR TO SAE WAS ON 06/NOV/2013, DRY POWDER INHALER
     Route: 065
     Dates: end: 20131106
  3. MIFLONIDE [Suspect]
     Indication: ASTHMA
     Dosage: LAST DOSE PRIOR TO SAE WAS ON 06/NOV/2013
     Route: 065
     Dates: end: 20131106
  4. MICARDIS [Concomitant]
  5. AZOPT [Concomitant]
  6. ALOVENT [Concomitant]
     Indication: ASTHMA
  7. LUMIGAN [Concomitant]

REACTIONS (4)
  - Respiratory tract infection bacterial [Recovered/Resolved]
  - Dizziness [Recovered/Resolved]
  - Headache [Recovered/Resolved]
  - Increased upper airway secretion [Unknown]
